FAERS Safety Report 23956688 (Version 1)
Quarter: 2024Q2

REPORT INFORMATION
  Report Type: Spontaneous
  Country: US (occurrence: None)
  Receive Date: 20240608
  Receipt Date: 20240608
  Transmission Date: 20240715
  Serious: Yes (Hospitalization)
  Sender: FDA-Public Use
  Company Number: None

PATIENT
  Age: 57 Year
  Sex: Male
  Weight: 453.3 kg

DRUGS (3)
  1. FLUOROURACIL [Suspect]
     Active Substance: FLUOROURACIL
     Indication: Atrial fibrillation
     Dates: end: 20240522
  2. LEUCOVORIN CALCIUM [Suspect]
     Active Substance: LEUCOVORIN CALCIUM
     Dates: end: 20240522
  3. ELOXATIN [Suspect]
     Active Substance: OXALIPLATIN
     Dates: end: 20240522

REACTIONS (11)
  - Bradycardia [None]
  - Dyspnoea [None]
  - Atrial fibrillation [None]
  - Lung infiltration [None]
  - Pneumonia [None]
  - Pulmonary oedema [None]
  - Complication associated with device [None]
  - Device placement issue [None]
  - Carotid sinus syndrome [None]
  - Cardiac failure acute [None]
  - Left ventricular failure [None]

NARRATIVE: CASE EVENT DATE: 20240527
